FAERS Safety Report 5284627-3 (Version None)
Quarter: 2007Q2

REPORT INFORMATION
  Report Type: 
  Country: None (occurrence: None)
  Receive Date: 20070403
  Receipt Date: 20070321
  Transmission Date: 20071010
  Serious: Yes (Hospitalization)
  Sender: FDA-Public Use
  Company Number: US-ELI_LILLY_AND_COMPANY-US200612002187

PATIENT
  Age: 79 Year
  Sex: Female
  Weight: 52.607 kg

DRUGS (8)
  1. FORTEO [Suspect]
     Indication: OSTEOPOROSIS
     Dosage: 20 UG, LIQUID
     Dates: start: 20060612, end: 20060801
  2. LIPITOR [Concomitant]
  3. LISINOPRIL [Concomitant]
  4. TAZTIA [Concomitant]
  5. SYNTHROID [Concomitant]
  6. CELEXA [Concomitant]
  7. TOPROL-XL [Concomitant]
  8. DARVOCET-N 100 [Concomitant]

REACTIONS (2)
  - BLOOD PRESSURE INCREASED [None]
  - CEREBROVASCULAR ACCIDENT [None]
